FAERS Safety Report 6681132-4 (Version None)
Quarter: 2010Q2

REPORT INFORMATION
  Report Type: 
  Country: None (occurrence: None)
  Receive Date: 20100414
  Receipt Date: 20100406
  Transmission Date: 20101027
  Serious: Yes (Other)
  Sender: FDA-Public Use
  Company Number: NO-ROCHE-695827

PATIENT
  Sex: Female

DRUGS (1)
  1. ROACTEMRA [Suspect]
     Dosage: FORM: INFUSION
     Route: 042
     Dates: start: 20100205, end: 20100323

REACTIONS (2)
  - DEAFNESS BILATERAL [None]
  - VISUAL IMPAIRMENT [None]
